FAERS Safety Report 17521883 (Version 1)
Quarter: 2020Q1

REPORT INFORMATION
  Report Type: Report from Study
  Country: AU (occurrence: AU)
  Receive Date: 20200310
  Receipt Date: 20200310
  Transmission Date: 20200409
  Serious: Yes (Hospitalization, Other)
  Sender: FDA-Public Use
  Company Number: AU-AMGEN-AUSCT2020012546

PATIENT
  Age: 21 Year
  Sex: Male
  Weight: 75.6 kg

DRUGS (26)
  1. AMBISOME [Concomitant]
     Active Substance: AMPHOTERICIN B
     Dosage: 100 MILLIGRAM
     Route: 042
     Dates: start: 20191218, end: 20200111
  2. TEMAZEPAM. [Concomitant]
     Active Substance: TEMAZEPAM
     Indication: INSOMNIA
     Dosage: 10 MILLIGRAM, AS NECESSARY
     Dates: start: 20191224
  3. THALIDOMIDE [Suspect]
     Active Substance: THALIDOMIDE
     Indication: PLASMA CELL MYELOMA
     Dosage: UNK UNK, PER CHEMO REGIM
     Route: 065
  4. PREDNISONE. [Suspect]
     Active Substance: PREDNISONE
     Indication: PRODUCT USED FOR UNKNOWN INDICATION
     Dosage: 30-3835 UNK
     Route: 048
     Dates: start: 20191213, end: 20200111
  5. ENOXAPARIN [Concomitant]
     Active Substance: ENOXAPARIN
     Indication: ANTIPLATELET THERAPY
     Dosage: 40 MILLIGRAM
     Route: 058
     Dates: start: 20191213
  6. ALLOPURINOL. [Concomitant]
     Active Substance: ALLOPURINOL
     Dosage: 300 MILLIGRAM, QD
     Dates: start: 20191219, end: 20191227
  7. LACTULOSE. [Concomitant]
     Active Substance: LACTULOSE
     Indication: CONSTIPATION
     Dosage: 15 MILLILITER, TID
     Dates: start: 20200103, end: 20200116
  8. VINCRISTINE [Concomitant]
     Active Substance: VINCRISTINE
     Dosage: 2-5 UNK
     Route: 042
     Dates: start: 20191220, end: 20200103
  9. PHENYLEPHRINE [Concomitant]
     Active Substance: PHENYLEPHRINE HYDROCHLORIDE
     Dosage: UNK
     Dates: start: 20191213, end: 20191213
  10. TROPICAMIDE. [Concomitant]
     Active Substance: TROPICAMIDE
     Dosage: UNK
     Dates: start: 20191213, end: 20191213
  11. ASPARAGINASE [Concomitant]
     Active Substance: ASPARAGINASE
     Dosage: 2200 UNK
     Dates: start: 20191224, end: 20191224
  12. LIGNOCAINE [LIDOCAINE] [Concomitant]
     Active Substance: LIDOCAINE
     Indication: LOCAL ANAESTHESIA
     Dosage: 5-10 MILLILITER
     Dates: start: 20191213, end: 20200117
  13. TRAMADOL. [Concomitant]
     Active Substance: TRAMADOL
     Indication: PAIN
     Dosage: 40-100 MILLIGRAM, QID, AS NECESSARY
     Dates: start: 20191223, end: 20200112
  14. CARFILZOMIB [Suspect]
     Active Substance: CARFILZOMIB
     Indication: PLASMA CELL MYELOMA
     Dosage: UNK UNK, PER CHEMO REGIM
     Route: 065
  15. DAUNORUBICIN [Concomitant]
     Active Substance: DAUNORUBICIN
     Dosage: 32-2010 UNK
     Route: 042
     Dates: start: 20191220, end: 20200110
  16. VALACICLOVIR [Concomitant]
     Active Substance: VALACYCLOVIR HYDROCHLORIDE
     Dosage: 50 MILLIGRAM, QD
     Dates: start: 20191213
  17. SULFAMETHOXAZOLE;TRIMETHOPRIM [Concomitant]
     Active Substance: SULFAMETHOXAZOLE\TRIMETHOPRIM
     Dosage: UNK, UNK, BD
     Dates: start: 20191216
  18. MYLANTA [CALCIUM CARBONATE] [Concomitant]
     Active Substance: CALCIUM CARBONATE
     Dosage: 30 MILLILITER, TID, AS NEEDED
     Dates: start: 20191227
  19. DEXAMETHASONE. [Suspect]
     Active Substance: DEXAMETHASONE
     Indication: PLASMA CELL MYELOMA
     Dosage: 20 MILLIGRAM, PER CHEMO REGIM
     Route: 065
  20. METHOTREXATE. [Suspect]
     Active Substance: METHOTREXATE
     Indication: PRODUCT USED FOR UNKNOWN INDICATION
     Dosage: 60 UNK
     Route: 037
     Dates: start: 20191213, end: 20200108
  21. SODIUM CHLORIDE. [Concomitant]
     Active Substance: SODIUM CHLORIDE
     Indication: MUCOSITIS MANAGEMENT
     Dosage: 0.9 PERCENT, QD
     Dates: start: 20191214
  22. PANTOPRAZOLE [Concomitant]
     Active Substance: PANTOPRAZOLE
     Dosage: 40 MILLIGRAM
     Dates: start: 20191224
  23. COLOXYL WITH SENNA [Concomitant]
     Active Substance: DOCUSATE SODIUM\SENNOSIDES A AND B
     Indication: CONSTIPATION
     Dosage: UNK
     Dates: start: 20191223
  24. METHOXYFLURANE. [Concomitant]
     Active Substance: METHOXYFLURANE
     Indication: LOCAL ANAESTHESIA
     Dosage: 3 MILLILITER
     Dates: start: 20191213, end: 20200117
  25. PARACETAMOL [Concomitant]
     Active Substance: ACETAMINOPHEN
     Indication: PAIN
     Dosage: 1 GRAM, QID, AS NEEDED
     Dates: start: 20191212
  26. METOCLOPRAMIDE. [Concomitant]
     Active Substance: METOCLOPRAMIDE
     Indication: NAUSEA
     Dosage: 10 GRAM, TID
     Dates: start: 20191213, end: 20200111

REACTIONS (2)
  - Infective myositis [Recovered/Resolved]
  - Muscular weakness [Not Recovered/Not Resolved]

NARRATIVE: CASE EVENT DATE: 20200108
